FAERS Safety Report 9170941 (Version 1)
Quarter: 2013Q1

REPORT INFORMATION
  Report Type: Spontaneous
  Country: US (occurrence: None)
  Receive Date: 20130312
  Receipt Date: 20130312
  Transmission Date: 20140127
  Serious: No
  Sender: FDA-Public Use
  Company Number: SP06457

PATIENT
  Age: 28 Year
  Sex: Male

DRUGS (1)
  1. OSMOPREP [Suspect]
     Route: 048
     Dates: start: 20130218, end: 20130218

REACTIONS (2)
  - Rash [None]
  - Hypotension [None]
